FAERS Safety Report 5076336-0 (Version None)
Quarter: 2006Q3

REPORT INFORMATION
  Report Type: 
  Country: None (occurrence: None)
  Receive Date: 20060807
  Receipt Date: 20060720
  Transmission Date: 20061208
  Serious: Yes (Other)
  Sender: FDA-Public Use
  Company Number: ACO_0253_2006

PATIENT
  Age: 65 Year
  Sex: Female

DRUGS (2)
  1. SIRDALUD [Suspect]
     Indication: MUSCLE SPASTICITY
     Dosage: DF, PO
     Route: 048
  2. LIORESAL [Suspect]
     Indication: MUSCLE SPASTICITY
     Dosage: DF, PO
     Route: 048

REACTIONS (1)
  - CEREBROVASCULAR ACCIDENT [None]
